FAERS Safety Report 4745634-X (Version None)
Quarter: 2005Q3

REPORT INFORMATION
  Report Type: 
  Country: None (occurrence: None)
  Receive Date: 20050815
  Receipt Date: 20050726
  Transmission Date: 20060218
  Serious: Yes (Disabling)
  Sender: FDA-Public Use
  Company Number: 310008M05FRA

PATIENT
  Age: 31 Year
  Sex: Female
  Weight: 65 kg

DRUGS (4)
  1. GONAL-F [Suspect]
     Indication: OVULATION INDUCTION
     Dosage: SEE IMAGE
     Dates: start: 20050122
  2. GONAL-F [Suspect]
     Indication: OVULATION INDUCTION
     Dosage: SEE IMAGE
     Dates: start: 20050410
  3. GONAL-F [Suspect]
     Indication: OVULATION INDUCTION
     Dosage: SEE IMAGE
     Dates: start: 20050507
  4. OVIDREL [Concomitant]

REACTIONS (4)
  - CONDITION AGGRAVATED [None]
  - CYST [None]
  - MALAISE [None]
  - MIGRAINE [None]
